FAERS Safety Report 9514912 (Version 1)
Quarter: 2013Q3

REPORT INFORMATION
  Report Type: Spontaneous
  Country: US (occurrence: US)
  Receive Date: 20130911
  Receipt Date: 20130911
  Transmission Date: 20140515
  Serious: Yes (Other)
  Sender: FDA-Public Use
  Company Number: US-SANOFI-AVENTIS-2013SA089354

PATIENT
  Age: 70 Year
  Sex: Female

DRUGS (3)
  1. LANTUS [Suspect]
     Indication: TYPE 2 DIABETES MELLITUS
     Dosage: 80-90 UNITS DAILY
     Route: 058
  2. NOVOLOG [Suspect]
     Route: 065
  3. METFORMIN [Suspect]
     Route: 065

REACTIONS (3)
  - Toe amputation [Unknown]
  - Blood glucose increased [Unknown]
  - Stress [Unknown]
